FAERS Safety Report 16986153 (Version 3)
Quarter: 2019Q4

REPORT INFORMATION
  Report Type: Report from Study
  Country: US (occurrence: US)
  Receive Date: 20191101
  Receipt Date: 20191217
  Transmission Date: 20200122
  Serious: Yes (Other)
  Sender: FDA-Public Use
  Company Number: US-JNJFOC-20191034951

PATIENT
  Sex: Female

DRUGS (1)
  1. SPRAVATO [Suspect]
     Active Substance: ESKETAMINE
     Indication: DEPRESSION

REACTIONS (6)
  - Nightmare [Unknown]
  - Drug ineffective [Unknown]
  - Limb injury [Unknown]
  - Crying [Unknown]
  - Eructation [Unknown]
  - Apathy [Unknown]

NARRATIVE: CASE EVENT DATE: 20190920
